FAERS Safety Report 21420205 (Version 1)
Quarter: 2022Q4

REPORT INFORMATION
  Report Type: Spontaneous
  Country: IN (occurrence: IN)
  Receive Date: 20221007
  Receipt Date: 20221007
  Transmission Date: 20230113
  Serious: Yes (Other)
  Sender: FDA-Public Use
  Company Number: IN-SUN PHARMACEUTICAL INDUSTRIES LTD-2022R1-357567

PATIENT
  Age: 32 Year
  Sex: Female

DRUGS (6)
  1. LEUPROLIDE [Suspect]
     Active Substance: LEUPROLIDE
     Indication: Product used for unknown indication
     Dosage: 0.5 MILLIGRAM
     Route: 058
  2. LEUPROLIDE [Suspect]
     Active Substance: LEUPROLIDE
     Dosage: 0.25 MILLIGRAM
     Route: 058
  3. PROGESTERONE [Suspect]
     Active Substance: PROGESTERONE
     Indication: Luteal phase deficiency
     Dosage: 100 MILLIGRAM, DAILY
     Route: 030
  4. ESTRADIOL [Suspect]
     Active Substance: ESTRADIOL
     Indication: Luteal phase deficiency
     Dosage: 2 MILLIGRAM, BID
     Route: 065
  5. DYDROGESTERONE [Suspect]
     Active Substance: DYDROGESTERONE
     Indication: Luteal phase deficiency
     Dosage: 10 MILLIGRAM, BID
     Route: 048
  6. HEPARIN [Suspect]
     Active Substance: HEPARIN SODIUM
     Indication: Thrombosis prophylaxis
     Dosage: 60 MICROGRAM
     Route: 058

REACTIONS (3)
  - Ovarian hyperstimulation syndrome [Recovered/Resolved]
  - Exposure during pregnancy [Unknown]
  - Live birth [Unknown]
